FAERS Safety Report 24112936 (Version 1)
Quarter: 2024Q3

REPORT INFORMATION
  Report Type: Spontaneous
  Country: FR (occurrence: FR)
  Receive Date: 20240719
  Receipt Date: 20240719
  Transmission Date: 20241016
  Serious: Yes (Death)
  Sender: MYLAN
  Company Number: None

PATIENT
  Age: 75 Year
  Sex: Female

DRUGS (5)
  1. OXALIPLATIN [Suspect]
     Active Substance: OXALIPLATIN
     Indication: Adenocarcinoma
     Dosage: 160 MILLIGRAM
     Route: 065
     Dates: start: 20231220, end: 20231220
  2. OXALIPLATIN [Suspect]
     Active Substance: OXALIPLATIN
     Dosage: 160 MILLIGRAM
     Route: 065
     Dates: start: 20240104, end: 20240104
  3. NIVOLUMAB [Suspect]
     Active Substance: NIVOLUMAB
     Indication: Adenocarcinoma
     Dosage: 240 MILLIGRAM
     Route: 065
     Dates: start: 20240104, end: 20240104
  4. FLUOROURACIL [Suspect]
     Active Substance: FLUOROURACIL
     Indication: Adenocarcinoma
     Dosage: 1700 MILLIGRAM
     Route: 065
     Dates: start: 20231220, end: 20231221
  5. FLUOROURACIL [Suspect]
     Active Substance: FLUOROURACIL
     Dosage: 2200 MILLIGRAM
     Route: 065
     Dates: start: 20240104, end: 20240105

REACTIONS (2)
  - Pancreatitis [Fatal]
  - Hepatitis [Fatal]

NARRATIVE: CASE EVENT DATE: 20240117
